FAERS Safety Report 12176488 (Version 1)
Quarter: 2016Q1

REPORT INFORMATION
  Report Type: Spontaneous
  Country: US (occurrence: US)
  Receive Date: 20160314
  Receipt Date: 20160314
  Transmission Date: 20160526
  Serious: No
  Sender: FDA-Public Use
  Company Number: US-AKORN PHARMACEUTICALS-2015AKN00698

PATIENT
  Age: 16 Year
  Sex: Male
  Weight: 79.15 kg

DRUGS (2)
  1. MYORISAN [Suspect]
     Active Substance: ISOTRETINOIN
     Indication: ACNE CYSTIC
     Dosage: 2 CAPSULES, 1X/DAY
     Dates: start: 20150918, end: 20151121
  2. FISH OIL [Concomitant]
     Active Substance: FISH OIL

REACTIONS (10)
  - Wound [Recovered/Resolved]
  - Rash generalised [Recovered/Resolved]
  - Nail discolouration [Recovered/Resolved]
  - Skin exfoliation [Recovered/Resolved]
  - Peripheral swelling [Recovered/Resolved]
  - Tenderness [Recovered/Resolved]
  - Blister [Recovered/Resolved]
  - Streptococcus test positive [Recovered/Resolved]
  - Impaired healing [Unknown]
  - Secretion discharge [Recovered/Resolved]

NARRATIVE: CASE EVENT DATE: 2015
